FAERS Safety Report 24867807 (Version 1)
Quarter: 2025Q1

REPORT INFORMATION
  Report Type: Other
  Country: US (occurrence: US)
  Receive Date: 20250121
  Receipt Date: 20250121
  Transmission Date: 20250408
  Serious: Yes (Other)
  Sender: CHANGZHOU PHARMACEUTICAL FACTORY
  Company Number: US-Changzhou Pharmaceutical Factory-2169470

PATIENT
  Age: 69 Year
  Sex: Male

DRUGS (3)
  1. DOXYCYCLINE HYCLATE [Suspect]
     Active Substance: DOXYCYCLINE HYCLATE
     Indication: Lyme disease
  2. AZITHROMYCIN ANHYDROUS [Concomitant]
     Active Substance: AZITHROMYCIN ANHYDROUS
  3. ATOVAQUONE [Concomitant]
     Active Substance: ATOVAQUONE

REACTIONS (6)
  - Gastrointestinal haemorrhage [Unknown]
  - Product use in unapproved indication [Unknown]
  - Oesophagitis [Unknown]
  - Blood loss anaemia [Unknown]
  - Duodenal ulcer [Unknown]
  - Gastritis erosive [Unknown]
